FAERS Safety Report 16931471 (Version 1)
Quarter: 2019Q4

REPORT INFORMATION
  Report Type: Spontaneous
  Country: US (occurrence: US)
  Receive Date: 20191017
  Receipt Date: 20191017
  Transmission Date: 20200122
  Serious: No
  Sender: FDA-Public Use
  Company Number: None

PATIENT
  Age: 43 Year
  Sex: Female
  Weight: 89.55 kg

DRUGS (6)
  1. HYDROCHLOROTHIAZIDE. [Concomitant]
     Active Substance: HYDROCHLOROTHIAZIDE
  2. FLUOXETINE HCL [Concomitant]
     Active Substance: FLUOXETINE HYDROCHLORIDE
  3. METFORMIN HCL [Concomitant]
     Active Substance: METFORMIN HYDROCHLORIDE
  4. UDENYCA [Suspect]
     Active Substance: PEGFILGRASTIM-CBQV
     Dosage: ?          OTHER FREQUENCY:Q2W;?
     Route: 058
  5. KLOR-CON M10 [Concomitant]
     Active Substance: POTASSIUM CHLORIDE
  6. METOPROLOL TARTRATE. [Concomitant]
     Active Substance: METOPROLOL TARTRATE

REACTIONS (3)
  - Musculoskeletal stiffness [None]
  - Arthralgia [None]
  - Myalgia [None]
